FAERS Safety Report 11308309 (Version 2)
Quarter: 2015Q3

REPORT INFORMATION
  Report Type: Spontaneous
  Country: US (occurrence: US)
  Receive Date: 20150724
  Receipt Date: 20150806
  Transmission Date: 20151125
  Serious: No
  Sender: FDA-Public Use
  Company Number: US-TEVA-581238USA

PATIENT
  Sex: Male

DRUGS (1)
  1. PROGLYCEM SUSPENSION [Suspect]
     Active Substance: DIAZOXIDE
     Indication: BLOOD GLUCOSE FLUCTUATION

REACTIONS (3)
  - Malaise [Unknown]
  - Product taste abnormal [Unknown]
  - Nausea [Unknown]
